FAERS Safety Report 18044186 (Version 1)
Quarter: 2020Q3

REPORT INFORMATION
  Report Type: Spontaneous
  Country: US (occurrence: US)
  Receive Date: 20200719
  Receipt Date: 20200719
  Transmission Date: 20201103
  Serious: No
  Sender: FDA-Public Use
  Company Number: None

PATIENT
  Age: 40 Year
  Sex: Female
  Weight: 81 kg

DRUGS (1)
  1. NP THYROID [Suspect]
     Active Substance: LEVOTHYROXINE\LIOTHYRONINE
     Indication: HYPOTHYROIDISM
     Dosage: ?          QUANTITY:1 TABLET(S);?
     Route: 060
     Dates: start: 20200227, end: 20200423

REACTIONS (7)
  - Muscle spasms [None]
  - Heart rate increased [None]
  - Fatigue [None]
  - Fall [None]
  - Impaired work ability [None]
  - Product substitution issue [None]
  - Product quality issue [None]

NARRATIVE: CASE EVENT DATE: 20200410
